FAERS Safety Report 19426219 (Version 2)
Quarter: 2021Q2

REPORT INFORMATION
  Report Type: Report from Study
  Country: BD (occurrence: BD)
  Receive Date: 20210616
  Receipt Date: 20210623
  Transmission Date: 20210717
  Serious: Yes (Death, Hospitalization, Other)
  Sender: FDA-Public Use
  Company Number: NVSC2021BD135159

PATIENT
  Age: 62 Year
  Sex: Male
  Weight: 55 kg

DRUGS (1)
  1. ZOMETA [Suspect]
     Active Substance: ZOLEDRONIC ACID
     Indication: HEPATIC CANCER
     Dosage: 4 MG, QMO (TOOK 4 DOSES)
     Route: 030
     Dates: start: 202102, end: 202105

REACTIONS (2)
  - Infection [Fatal]
  - Metastasis [Unknown]

NARRATIVE: CASE EVENT DATE: 20210524
